FAERS Safety Report 4576253-6 (Version None)
Quarter: 2005Q1

REPORT INFORMATION
  Report Type: 
  Country: None (occurrence: None)
  Receive Date: 20050207
  Receipt Date: 20050120
  Transmission Date: 20050727
  Serious: Yes (Hospitalization, Disabling)
  Sender: FDA-Public Use
  Company Number: ACO_0121_2005

PATIENT
  Age: 74 Year
  Sex: Female

DRUGS (2)
  1. SIRDALUD [Suspect]
     Indication: MUSCLE SPASTICITY
     Dosage: PO
     Route: 048
     Dates: start: 20040101, end: 20040101
  2. CIPROXIN [Suspect]
     Indication: URINARY TRACT INFECTION
     Dates: end: 20040101

REACTIONS (4)
  - CEREBRAL INFARCTION [None]
  - CONDITION AGGRAVATED [None]
  - HYPOTENSION [None]
  - MEMORY IMPAIRMENT [None]
